FAERS Safety Report 12618782 (Version 1)
Quarter: 2016Q3

REPORT INFORMATION
  Report Type: Spontaneous
  Country: US (occurrence: US)
  Receive Date: 20160803
  Receipt Date: 20160803
  Transmission Date: 20161109
  Serious: No
  Sender: FDA-Public Use
  Company Number: US-BEH-2016071720

PATIENT
  Age: 49 Year
  Sex: Male
  Weight: 62.59 kg

DRUGS (24)
  1. HEPARIN [Concomitant]
     Active Substance: HEPARIN SODIUM
  2. TRAMADOL. [Concomitant]
     Active Substance: TRAMADOL
  3. ZEMAIRA [Suspect]
     Active Substance: .ALPHA.1-PROTEINASE INHIBITOR HUMAN
     Indication: ALPHA-1 ANTI-TRYPSIN DEFICIENCY
     Dosage: 60 MG/KG, QW
     Route: 042
  4. SPIRIVA [Concomitant]
     Active Substance: TIOTROPIUM BROMIDE MONOHYDRATE
  5. VITAMIN D3 [Concomitant]
     Active Substance: CHOLECALCIFEROL
  6. SODIUM CHLORIDE. [Concomitant]
     Active Substance: SODIUM CHLORIDE
  7. IBUPROFEN. [Concomitant]
     Active Substance: IBUPROFEN
  8. DULERA [Concomitant]
     Active Substance: FORMOTEROL FUMARATE DIHYDRATE\MOMETASONE FUROATE
  9. VITAMIN B-6 [Concomitant]
     Active Substance: PYRIDOXINE
  10. VITAMIN B12 [Concomitant]
     Active Substance: CYANOCOBALAMIN
  11. MAXIPIME [Concomitant]
     Active Substance: CEFEPIME HYDROCHLORIDE
  12. DIPHENHYDRAMINE. [Concomitant]
     Active Substance: DIPHENHYDRAMINE
  13. XANAX [Concomitant]
     Active Substance: ALPRAZOLAM
  14. RIFABUTIN. [Concomitant]
     Active Substance: RIFABUTIN
  15. GUAIFENESIN. [Concomitant]
     Active Substance: GUAIFENESIN
  16. GABAPENTIN. [Concomitant]
     Active Substance: GABAPENTIN
  17. ALBUTEROL SULFATE. [Concomitant]
     Active Substance: ALBUTEROL SULFATE
  18. OMEPRAZOLE. [Concomitant]
     Active Substance: OMEPRAZOLE
  19. PROBIOTIC                          /06395501/ [Concomitant]
     Active Substance: BIFIDOBACTERIUM ANIMALIS SUBSP. LACTIS
  20. CLOFAZIMINE [Concomitant]
     Active Substance: CLOFAZIMINE
  21. EPIPEN [Concomitant]
     Active Substance: EPINEPHRINE
  22. LMX                                /00033401/ [Concomitant]
  23. PREDNISONE. [Concomitant]
     Active Substance: PREDNISONE
  24. AMIKACIN [Concomitant]
     Active Substance: AMIKACIN

REACTIONS (1)
  - Abdominal pain [Recovered/Resolved]

NARRATIVE: CASE EVENT DATE: 201602
